FAERS Safety Report 4597459-6 (Version None)
Quarter: 2005Q1

REPORT INFORMATION
  Report Type: 
  Country: None (occurrence: None)
  Receive Date: 20050303
  Receipt Date: 20050214
  Transmission Date: 20050727
  Serious: Yes (Disabling)
  Sender: FDA-Public Use
  Company Number: US-MERCK-0502USA01817

PATIENT
  Age: 47 Year
  Sex: Female
  Weight: 46 kg

DRUGS (1)
  1. FOSAMAX [Suspect]
     Indication: OSTEOPOROSIS
     Route: 048
     Dates: start: 20050213, end: 20050213

REACTIONS (4)
  - BONE PAIN [None]
  - BURNING SENSATION [None]
  - FEELING ABNORMAL [None]
  - MYALGIA [None]
